FAERS Safety Report 10472749 (Version 1)
Quarter: 2014Q3

REPORT INFORMATION
  Report Type: Report from Study
  Country: DE (occurrence: DE)
  Receive Date: 20140924
  Receipt Date: 20140924
  Transmission Date: 20150326
  Serious: Yes (Hospitalization)
  Sender: FDA-Public Use
  Company Number: PHHY2014DE117825

PATIENT
  Sex: Male
  Weight: 82 kg

DRUGS (11)
  1. LATANOPROST. [Concomitant]
     Active Substance: LATANOPROST
  2. EUPHYLONG [Concomitant]
     Active Substance: THEOPHYLLINE
     Dosage: 600 MG, UNK
     Dates: start: 2000
  3. BISOPROLOL [Concomitant]
     Active Substance: BISOPROLOL
  4. ULTIBRO BREEZHALER [Suspect]
     Active Substance: GLYCOPYRRONIUM\INDACATEROL
     Indication: CHRONIC OBSTRUCTIVE PULMONARY DISEASE
     Dosage: 1 DF, QD
     Route: 055
     Dates: start: 20140711
  5. BERODUAL [Concomitant]
     Active Substance: FENOTEROL HYDROBROMIDE\IPRATROPIUM BROMIDE
     Dosage: 1 DF, PRN
  6. ATACAND [Concomitant]
     Active Substance: CANDESARTAN CILEXETIL
  7. PANTOZOL [Concomitant]
     Active Substance: PANTOPRAZOLE SODIUM
  8. NO TREATMENT RECEIVED [Suspect]
     Active Substance: UNSPECIFIED INGREDIENT
  9. BUDIAIR [Concomitant]
     Dosage: 400 MG, QD
     Dates: start: 20140711
  10. AZOPT [Concomitant]
     Active Substance: BRINZOLAMIDE
  11. ZOLPIDEM [Concomitant]
     Active Substance: ZOLPIDEM\ZOLPIDEM TARTRATE

REACTIONS (2)
  - Cerebrovascular accident [Recovering/Resolving]
  - Pulmonary embolism [Recovered/Resolved]

NARRATIVE: CASE EVENT DATE: 20140808
